FAERS Safety Report 18809900 (Version 3)
Quarter: 2021Q1

REPORT INFORMATION
  Report Type: Spontaneous
  Country: CN (occurrence: CN)
  Receive Date: 20210129
  Receipt Date: 20210326
  Transmission Date: 20210419
  Serious: Yes (Hospitalization, Other)
  Sender: FDA-Public Use
  Company Number: CN-PFIZER INC-2021064448

PATIENT
  Age: 31 Year
  Sex: Male
  Weight: 63 kg

DRUGS (12)
  1. CYTOSAR [Suspect]
     Active Substance: CYTARABINE
     Indication: LYMPHOMA
     Dosage: 0.500 G, 1X/DAY
     Route: 037
     Dates: start: 20201123, end: 20201123
  2. RITUXIMAB. [Suspect]
     Active Substance: RITUXIMAB
     Indication: LYMPHOMA
     Dosage: 0.1 G
     Dates: start: 20201124, end: 20201124
  3. SODIUM CHLORIDE. [Concomitant]
     Active Substance: SODIUM CHLORIDE
     Dosage: 100.000 ML, 1X/DAY
     Route: 041
     Dates: start: 20201130, end: 20201130
  4. SODIUM CHLORIDE. [Concomitant]
     Active Substance: SODIUM CHLORIDE
     Dosage: 500.000 ML, 1X/DAY
     Route: 041
     Dates: start: 20201125, end: 20201128
  5. RITUXIMAB. [Suspect]
     Active Substance: RITUXIMAB
     Dosage: 0.5 G
     Dates: start: 20201124, end: 20201124
  6. ETOPOSIDE. [Suspect]
     Active Substance: ETOPOSIDE
     Indication: LYMPHOMA
     Dosage: 3.200 ML, 1X/DAY
     Route: 041
     Dates: start: 20201125, end: 20201128
  7. DOXORUBICIN HYDROCHLORIDE LIPOSOME [Suspect]
     Active Substance: DOXORUBICIN HYDROCHLORIDE
     Dosage: 20 MG
     Route: 041
     Dates: start: 20201127, end: 20201127
  8. METHOTREXATE SODIUM. [Suspect]
     Active Substance: METHOTREXATE SODIUM
     Indication: LYMPHOMA
     Dosage: 5.000 ML, 1X/DAY
     Dates: start: 20201123, end: 20201123
  9. DOXORUBICIN HYDROCHLORIDE LIPOSOME [Suspect]
     Active Substance: DOXORUBICIN HYDROCHLORIDE
     Indication: LYMPHOMA
     Dosage: 20 MG
     Route: 041
     Dates: start: 20201125, end: 20201125
  10. SODIUM CHLORIDE. [Concomitant]
     Active Substance: SODIUM CHLORIDE
     Indication: VEHICLE SOLUTION USE
     Dosage: 10.00000 ML, 1X/DAY
     Route: 033
     Dates: start: 20201123, end: 20201123
  11. SODIUM CHLORIDE. [Concomitant]
     Active Substance: SODIUM CHLORIDE
     Dosage: 100.000 ML, 1X/DAY
     Route: 033
     Dates: start: 20201123, end: 20201123
  12. ENDOXAN?BAXTER [Suspect]
     Active Substance: CYCLOPHOSPHAMIDE
     Indication: LYMPHOMA
     Dosage: 0.960 G, 1X/DAY
     Route: 041
     Dates: start: 20201130, end: 20201130

REACTIONS (2)
  - White blood cell count decreased [Unknown]
  - Neutrophil count decreased [Unknown]

NARRATIVE: CASE EVENT DATE: 20201208
